FAERS Safety Report 16186569 (Version 1)
Quarter: 2019Q2

REPORT INFORMATION
  Report Type: Spontaneous
  Country: US (occurrence: US)
  Receive Date: 20190411
  Receipt Date: 20190411
  Transmission Date: 20190711
  Serious: Yes (Other)
  Sender: FDA-Public Use
  Company Number: US-AKRON, INC.-2065701

PATIENT
  Sex: Female

DRUGS (1)
  1. THERATEARS STERILID EYELID CLEANSER [Suspect]
     Active Substance: TEA TREE OIL
     Route: 061

REACTIONS (2)
  - Corneal abrasion [Recovered/Resolved]
  - Eye irritation [Recovered/Resolved]
